FAERS Safety Report 21269532 (Version 1)
Quarter: 2022Q3

REPORT INFORMATION
  Report Type: Spontaneous
  Country: US (occurrence: None)
  Receive Date: 20220829
  Receipt Date: 20220829
  Transmission Date: 20221027
  Serious: Yes (Other)
  Sender: FDA-Public Use
  Company Number: None

PATIENT
  Age: 77 Year
  Sex: Male
  Weight: 87.75 kg

DRUGS (11)
  1. SERTRALINE HYDROCHLORIDE [Suspect]
     Active Substance: SERTRALINE HYDROCHLORIDE
     Indication: Anxiety
     Dosage: OTHER QUANTITY : 1 TABLET(S);?
     Route: 048
  2. ATENOLOL [Concomitant]
     Active Substance: ATENOLOL
  3. LOSARTAN [Concomitant]
     Active Substance: LOSARTAN
  4. CRESTOR [Concomitant]
     Active Substance: ROSUVASTATIN CALCIUM
  5. PROSCAR [Concomitant]
     Active Substance: FINASTERIDE
  6. ZETIA [Concomitant]
     Active Substance: EZETIMIBE
  7. SERTRALINE [Concomitant]
     Active Substance: SERTRALINE HYDROCHLORIDE
  8. TIMOLOL [Concomitant]
  9. VITAMINS [Concomitant]
     Active Substance: VITAMINS
  10. TYLENOL [Concomitant]
  11. ADVIL [Concomitant]

REACTIONS (5)
  - Product odour abnormal [None]
  - Oral discomfort [None]
  - Dyspepsia [None]
  - Product substitution issue [None]
  - Suspected product contamination [None]

NARRATIVE: CASE EVENT DATE: 20220826
